FAERS Safety Report 12847638 (Version 1)
Quarter: 2016Q4

REPORT INFORMATION
  Report Type: Spontaneous
  Country: US (occurrence: US)
  Receive Date: 20161013
  Receipt Date: 20161013
  Transmission Date: 20170207
  Serious: Yes (Hospitalization)
  Sender: FDA-Public Use
  Company Number: None

PATIENT
  Age: 77 Year
  Sex: Male

DRUGS (13)
  1. FERROUS SULF [Concomitant]
  2. PROPRANOLOL [Concomitant]
     Active Substance: PROPRANOLOL\PROPRANOLOL HYDROCHLORIDE
  3. ESCITALOPRAM [Concomitant]
     Active Substance: ESCITALOPRAM OXALATE
  4. DIGOXIN. [Concomitant]
     Active Substance: DIGOXIN
  5. HYDROCO/APAP [Concomitant]
     Active Substance: ACETAMINOPHEN\HYDROCODONE
  6. CLONAZEPAM. [Concomitant]
     Active Substance: CLONAZEPAM
  7. SUTENT [Suspect]
     Active Substance: SUNITINIB MALATE
     Indication: RENAL CANCER
     Route: 048
     Dates: start: 20160816, end: 20161010
  8. SENNA SMOOTH [Concomitant]
  9. FOLIC ACID. [Concomitant]
     Active Substance: FOLIC ACID
  10. PRESERVISION TAB AREDS [Concomitant]
  11. MELATONIN [Concomitant]
     Active Substance: MELATONIN
  12. DOCQLACE [Concomitant]
     Active Substance: DOCUSATE SODIUM
  13. MULTI-VIT [Concomitant]
     Active Substance: VITAMINS

REACTIONS (3)
  - Renal disorder [None]
  - Dyspnoea [None]
  - Dehydration [None]

NARRATIVE: CASE EVENT DATE: 20161005
